FAERS Safety Report 18701220 (Version 1)
Quarter: 2021Q1

REPORT INFORMATION
  Report Type: Spontaneous
  Country: BR (occurrence: BR)
  Receive Date: 20210105
  Receipt Date: 20210105
  Transmission Date: 20210419
  Serious: Yes (Death, Hospitalization, Other)
  Sender: FDA-Public Use
  Company Number: BR-BRISTOL-MYERS SQUIBB COMPANY-BMS-2020-113062

PATIENT
  Age: 90 Year
  Sex: Female

DRUGS (2)
  1. CLEXANE [Suspect]
     Active Substance: ENOXAPARIN SODIUM
     Indication: PRODUCT USED FOR UNKNOWN INDICATION
     Dosage: UNK
     Route: 065
     Dates: start: 20201208, end: 20201223
  2. ELIQUIS [Suspect]
     Active Substance: APIXABAN
     Indication: EMBOLISM VENOUS
     Dosage: 2.5 MILLIGRAM, BID
     Route: 065
     Dates: start: 2019, end: 20201223

REACTIONS (5)
  - Pneumonia [Recovered/Resolved]
  - Urinary tract infection [Fatal]
  - Delirium [Fatal]
  - Parkinson^s disease [Fatal]
  - Eye haematoma [Unknown]

NARRATIVE: CASE EVENT DATE: 20201225
